FAERS Safety Report 24320676 (Version 1)
Quarter: 2024Q3

REPORT INFORMATION
  Report Type: Spontaneous
  Country: US (occurrence: US)
  Receive Date: 20240915
  Receipt Date: 20240915
  Transmission Date: 20241017
  Serious: Yes (Life-Threatening, Hospitalization, Other)
  Sender: DR REDDYS
  Company Number: US-DRL-USA-SPO/USA/24/0013032

PATIENT
  Age: 35 Month
  Sex: Male
  Weight: 12.9 kg

DRUGS (2)
  1. TOPIRAMATE [Suspect]
     Active Substance: TOPIRAMATE
     Indication: Seizure
  2. PEDIALYTE [Concomitant]
     Active Substance: POTASSIUM CITRATE\SODIUM CITRATE\ZINC
     Indication: Product used for unknown indication

REACTIONS (7)
  - Hypercalcaemia [Recovered/Resolved]
  - Tachyphylaxis [Unknown]
  - Hypercalciuria [Unknown]
  - Nephrocalcinosis [Unknown]
  - Acute kidney injury [Unknown]
  - Product use issue [Unknown]
  - Constipation [Unknown]
